FAERS Safety Report 19873408 (Version 1)
Quarter: 2021Q3

REPORT INFORMATION
  Report Type: Spontaneous
  Country: RU (occurrence: RU)
  Receive Date: 20210923
  Receipt Date: 20210923
  Transmission Date: 20211014
  Serious: Yes (Other)
  Sender: FDA-Public Use
  Company Number: RU-ASTRAZENECA-2021A730835

PATIENT
  Age: 51 Year
  Sex: Male
  Weight: 87 kg

DRUGS (10)
  1. DE?NOL [TRIPOTASSIUM DICITRATOBISMUTHATE] [Suspect]
     Active Substance: BISMUTH SUBCITRATE
     Indication: GASTRITIS EROSIVE
     Route: 048
     Dates: start: 20210527, end: 20210607
  2. THROMBO ASS [Concomitant]
     Active Substance: ASPIRIN
     Indication: MYOCARDIAL ISCHAEMIA
     Dosage: 100.0MG ONCE/SINGLE ADMINISTRATION
     Route: 048
     Dates: start: 20210602
  3. CEFAZOLIN SODIUM STERILE [Concomitant]
     Indication: ANTIBIOTIC PROPHYLAXIS
     Dosage: 2.0G ONCE/SINGLE ADMINISTRATION
     Route: 042
     Dates: start: 20210603
  4. KETOPROFEN. [Concomitant]
     Active Substance: KETOPROFEN
     Indication: PAIN
     Dosage: 100.0MG ONCE/SINGLE ADMINISTRATION
     Route: 030
     Dates: start: 20210602
  5. ALMAGEL [Concomitant]
     Indication: GASTRITIS EROSIVE
     Dosage: 15.0ML ONCE/SINGLE ADMINISTRATION
     Route: 048
     Dates: start: 20210527
  6. OMEPRAZOL?AKRIHIN [Concomitant]
     Indication: GASTRITIS EROSIVE
     Dosage: 20.0MG ONCE/SINGLE ADMINISTRATION
     Route: 048
     Dates: start: 20210527
  7. ROSUVASTATIN CANON [Concomitant]
     Indication: MYOCARDIAL ISCHAEMIA
     Dosage: 20.0MG ONCE/SINGLE ADMINISTRATION
     Route: 048
     Dates: start: 20210527
  8. FAMOTIDINE. [Concomitant]
     Active Substance: FAMOTIDINE
     Indication: GASTRITIS EROSIVE
     Dosage: 20.0MG ONCE/SINGLE ADMINISTRATION
     Route: 042
     Dates: start: 20210527, end: 20210603
  9. BRILINTA [Suspect]
     Active Substance: TICAGRELOR
     Indication: PERCUTANEOUS CORONARY INTERVENTION
     Route: 048
     Dates: start: 20210603, end: 20210604
  10. NEBILONG [Concomitant]
     Indication: MYOCARDIAL ISCHAEMIA
     Dosage: 5.0MG ONCE/SINGLE ADMINISTRATION
     Route: 048
     Dates: start: 20210527

REACTIONS (2)
  - Hyperthermia [Recovered/Resolved]
  - Urticaria [Recovered/Resolved]

NARRATIVE: CASE EVENT DATE: 20210604
